FAERS Safety Report 21109904 (Version 1)
Quarter: 2022Q3

REPORT INFORMATION
  Report Type: Report from Study
  Country: US (occurrence: US)
  Receive Date: 20220721
  Receipt Date: 20220721
  Transmission Date: 20221026
  Serious: Yes (Hospitalization)
  Sender: FDA-Public Use
  Company Number: US-Accord-269603

PATIENT
  Sex: Male
  Weight: 105.69 kg

DRUGS (1)
  1. CLOZAPINE [Suspect]
     Active Substance: CLOZAPINE
     Indication: Schizophrenia

REACTIONS (7)
  - Pain in extremity [Unknown]
  - Hypothermia [Unknown]
  - Constipation [Unknown]
  - Mental disorder [Unknown]
  - Psychotic disorder [Unknown]
  - Electrolyte imbalance [Unknown]
  - Fall [Unknown]
